FAERS Safety Report 5290307-0 (Version None)
Quarter: 2007Q2

REPORT INFORMATION
  Report Type: 
  Country: None (occurrence: None)
  Receive Date: 20070409
  Receipt Date: 20070403
  Transmission Date: 20071010
  Serious: Yes (Hospitalization)
  Sender: FDA-Public Use
  Company Number: FR-ELI_LILLY_AND_COMPANY-FR200704000738

PATIENT
  Age: 84 Year
  Sex: Female

DRUGS (6)
  1. ZYPREXA [Suspect]
     Indication: PERSECUTORY DELUSION
     Dosage: 7.5 MG, DAILY (1/D)
     Route: 048
  2. DEBRIDAT [Concomitant]
     Dosage: 3 D/F, DAILY (1/D)
     Route: 048
  3. DEPAMIDE [Concomitant]
     Dosage: 2 D/F, DAILY (1/D)
     Route: 065
  4. MIANSERIN HYDROCHLORIDE [Concomitant]
     Dosage: 60 MG, DAILY (1/D)
     Route: 048
  5. LEPTICUR [Concomitant]
     Dosage: 25 MG, DAILY (1/D)
     Route: 048
  6. LOXAPAC [Concomitant]
     Dosage: 200 MG, DAILY (1/D)
     Route: 048

REACTIONS (4)
  - DEHYDRATION [None]
  - HEAT STROKE [None]
  - MUSCLE RIGIDITY [None]
  - ORTHOSTATIC HYPOTENSION [None]
